FAERS Safety Report 17712294 (Version 1)
Quarter: 2020Q2

REPORT INFORMATION
  Report Type: Spontaneous
  Country: JP (occurrence: JP)
  Receive Date: 20200427
  Receipt Date: 20200427
  Transmission Date: 20200714
  Serious: Yes (Other)
  Sender: FDA-Public Use
  Company Number: JP-ARBOR PHARMACEUTICALS, LLC-JP-2020ARB000333

PATIENT
  Age: 88 Year

DRUGS (2)
  1. REGNITE [Suspect]
     Active Substance: GABAPENTIN ENACARBIL
     Indication: RESTLESS LEGS SYNDROME
     Dosage: UNK
     Route: 048
  2. REGNITE [Suspect]
     Active Substance: GABAPENTIN ENACARBIL
     Dosage: UNK
     Route: 048

REACTIONS (1)
  - Colon cancer recurrent [Unknown]
